FAERS Safety Report 5295160-7 (Version None)
Quarter: 2007Q2

REPORT INFORMATION
  Report Type: 
  Country: None (occurrence: None)
  Receive Date: 20070412
  Receipt Date: 20070405
  Transmission Date: 20071010
  Serious: Yes (Disabling)
  Sender: FDA-Public Use
  Company Number: FR-BOEHRINGER INGELHEIM PHARMACEUTICALS, INC.-2007-FF-00138FF

PATIENT
  Sex: Female
  Weight: 88 kg

DRUGS (4)
  1. SPIRIVA [Suspect]
     Indication: DYSPNOEA
     Route: 055
     Dates: start: 20061214, end: 20061221
  2. SINGULAIR [Concomitant]
  3. SERETIDE [Concomitant]
  4. BRONCHODUAL [Concomitant]

REACTIONS (1)
  - SUFFOCATION FEELING [None]
